FAERS Safety Report 13674683 (Version 5)
Quarter: 2018Q4

REPORT INFORMATION
  Report Type: Spontaneous
  Country: US (occurrence: US)
  Receive Date: 20170621
  Receipt Date: 20181114
  Transmission Date: 20190204
  Serious: Yes (Disabling)
  Sender: FDA-Public Use
  Company Number: US-PFIZER INC-2017265014

PATIENT
  Age: 70 Year
  Sex: Female

DRUGS (9)
  1. GABAPENTIN. [Concomitant]
     Active Substance: GABAPENTIN
     Dosage: UNK, 3X/DAY (600 MG ONE AND A HALF IN THE MORNING AND 1.5 AT NOON AND 2 AT NIGHT)
     Route: 048
  2. BACLOFEN. [Concomitant]
     Active Substance: BACLOFEN
     Indication: MULTIPLE SCLEROSIS
     Dosage: 1 DF, 3X/DAY
     Route: 048
  3. LYRICA [Suspect]
     Active Substance: PREGABALIN
     Indication: TRIGEMINAL NEURALGIA
     Dosage: 50 MG, 2X/DAY
     Route: 048
     Dates: end: 201705
  4. LYRICA [Suspect]
     Active Substance: PREGABALIN
     Indication: EYE PAIN
  5. LYRICA [Suspect]
     Active Substance: PREGABALIN
     Indication: FEELING ABNORMAL
  6. LYRICA [Suspect]
     Active Substance: PREGABALIN
     Indication: MYALGIA
     Dosage: UNK (150)
     Route: 048
  7. LYRICA [Suspect]
     Active Substance: PREGABALIN
     Indication: MULTIPLE SCLEROSIS
     Dosage: 150 MG, 2X/DAY
     Route: 048
     Dates: end: 20180714
  8. GABAPENTIN. [Concomitant]
     Active Substance: GABAPENTIN
     Indication: MULTIPLE SCLEROSIS
     Dosage: 2 DF, 3X/DAY
     Route: 048
     Dates: start: 2003
  9. TECFIDERA [Concomitant]
     Active Substance: DIMETHYL FUMARATE
     Indication: MULTIPLE SCLEROSIS
     Dosage: 2 DF, 2X/DAY
     Route: 048

REACTIONS (8)
  - Paraesthesia [Unknown]
  - Accident [Unknown]
  - Eye pain [Unknown]
  - Dysstasia [Unknown]
  - Somnolence [Unknown]
  - Intentional product use issue [Unknown]
  - Facial pain [Not Recovered/Not Resolved]
  - Pain [Unknown]

NARRATIVE: CASE EVENT DATE: 201705
